FAERS Safety Report 8288134-5 (Version None)
Quarter: 2012Q2

REPORT INFORMATION
  Report Type: 
  Country: None (occurrence: None)
  Receive Date: 20120416
  Receipt Date: 20120411
  Transmission Date: 20120825
  Serious: Yes (Other)
  Sender: FDA-Public Use
  Company Number: SE-ABBOTT-08P-150-0490155-00

PATIENT
  Sex: Male
  Weight: 68 kg

DRUGS (7)
  1. KALCIPOS [Concomitant]
     Indication: PRODUCT USED FOR UNKNOWN INDICATION
  2. HUMIRA [Suspect]
     Indication: ANKYLOSING SPONDYLITIS
     Route: 050
     Dates: start: 20080310, end: 20081105
  3. RISEDRONATE SODIUM [Concomitant]
     Indication: PRODUCT USED FOR UNKNOWN INDICATION
  4. HUMIRA [Suspect]
  5. HUMIRA [Suspect]
     Indication: RHEUMATOID ARTHRITIS
  6. MELOXICAM [Concomitant]
     Indication: PRODUCT USED FOR UNKNOWN INDICATION
  7. ENBREL [Suspect]
     Indication: ANKYLOSING SPONDYLITIS
     Route: 050
     Dates: start: 20070124, end: 20080224

REACTIONS (4)
  - MULTIPLE SCLEROSIS [None]
  - WHEELCHAIR USER [None]
  - SPINAL DISORDER [None]
  - ACTIVITIES OF DAILY LIVING IMPAIRED [None]
